FAERS Safety Report 4801668-8 (Version None)
Quarter: 2005Q4

REPORT INFORMATION
  Report Type: 
  Country: None (occurrence: None)
  Receive Date: 20051013
  Receipt Date: 20051013
  Transmission Date: 20060501
  Serious: Yes (Other)
  Sender: FDA-Public Use
  Company Number: None

PATIENT
  Sex: Female
  Weight: 59.4212 kg

DRUGS (6)
  1. ZOCOR [Suspect]
     Indication: HYPERLIPIDAEMIA
     Dosage: 40 MG PO DAILY
     Route: 048
     Dates: start: 20050801, end: 20051001
  2. ENALAPRIL [Concomitant]
  3. DIGITEX [Concomitant]
  4. METOPROLOL [Concomitant]
  5. ISOSORBIDE MONONITRATE [Concomitant]
  6. ASPIRIN [Concomitant]

REACTIONS (1)
  - PAIN IN EXTREMITY [None]
